FAERS Safety Report 6298858-7 (Version None)
Quarter: 2009Q3

REPORT INFORMATION
  Report Type: 
  Country: None (occurrence: None)
  Receive Date: 20090803
  Receipt Date: 20081114
  Transmission Date: 20100115
  Serious: Yes (Hospitalization)
  Sender: FDA-Public Use
  Company Number: 2008-186690-NL

PATIENT
  Age: 52 Year
  Sex: Male

DRUGS (12)
  1. REMERON [Suspect]
     Dosage: 60 MG DAILY,  AT BEDTIME
     Dates: end: 20080101
  2. REMERON [Suspect]
     Dosage: 30 MG DAILY,  AT BEDTIME
     Dates: start: 20080101
  3. THORAZINE [Suspect]
     Dosage: 100 MG TID
     Dates: end: 20080101
  4. THORAZINE [Suspect]
     Dosage: 100 MG BID
  5. PEG-INTRON [Concomitant]
  6. RIBASPHERE [Concomitant]
  7. ALPRAZOLAM [Concomitant]
  8. BENZTROPINE MESYLATE [Concomitant]
  9. LASIX [Concomitant]
  10. GUAIFENEX PSE [Concomitant]
  11. POTASSIUM CHLORIDE [Concomitant]
  12. PRILOSEC [Concomitant]

REACTIONS (1)
  - SOMNOLENCE [None]
